FAERS Safety Report 13405837 (Version 6)
Quarter: 2017Q3

REPORT INFORMATION
  Report Type: Report from Study
  Country: US (occurrence: US)
  Receive Date: 20170405
  Receipt Date: 20170713
  Transmission Date: 20171127
  Serious: Yes (Other)
  Sender: FDA-Public Use
  Company Number: US-MALLINCKRODT-T201700910

PATIENT
  Sex: Female

DRUGS (6)
  1. REPOSITORY CORTICOTROPIN INJECTION [Suspect]
     Active Substance: CORTICOTROPIN
     Indication: PROTEINURIA
     Dosage: 20 UNITS / 0.25 ML, ONCE WEEKLY
     Route: 058
     Dates: start: 20170302, end: 201703
  2. REPOSITORY CORTICOTROPIN INJECTION [Suspect]
     Active Substance: CORTICOTROPIN
     Indication: NEPHROTIC SYNDROME
     Dosage: 20 UNITS / 0.25 ML, 2 TIME A WEEK (MONDAY AND THURSDAY)
     Route: 058
     Dates: start: 201703
  3. CLONIDINE. [Suspect]
     Active Substance: CLONIDINE
     Indication: PRODUCT USED FOR UNKNOWN INDICATION
     Dosage: PATCHES
     Route: 065
  4. REPOSITORY CORTICOTROPIN INJECTION [Suspect]
     Active Substance: CORTICOTROPIN
     Dosage: 40 UNITS / .5 ML, 2 TIMES PER WEEK, MONDAYS/THURSDAY
     Route: 058
     Dates: start: 20170302
  5. REPOSITORY CORTICOTROPIN INJECTION [Suspect]
     Active Substance: CORTICOTROPIN
     Dosage: 40 UNITS/0.5 ML, TWO TIMES PER WEEK, EVERY FOURTH DAY
     Route: 058
     Dates: start: 20170302
  6. REPOSITORY CORTICOTROPIN INJECTION [Suspect]
     Active Substance: CORTICOTROPIN
     Dosage: 40 UNITS / .5 ML, 2 TIMES PER WEEK, MONDAYS/THURSDAY
     Route: 058
     Dates: start: 20170302

REACTIONS (18)
  - Blood glucose decreased [Recovering/Resolving]
  - Decreased appetite [Not Recovered/Not Resolved]
  - Urine analysis abnormal [Recovering/Resolving]
  - Hypertension [Recovering/Resolving]
  - Renal hypertension [Recovering/Resolving]
  - Headache [Recovering/Resolving]
  - Skin discolouration [Not Recovered/Not Resolved]
  - Neuropathy peripheral [Recovering/Resolving]
  - Irritability [Recovering/Resolving]
  - Muscular weakness [Not Recovered/Not Resolved]
  - Thirst decreased [Not Recovered/Not Resolved]
  - Skin irritation [Not Recovered/Not Resolved]
  - Muscle spasms [Not Recovered/Not Resolved]
  - Fatigue [Not Recovered/Not Resolved]
  - Hyperglycaemia [Not Recovered/Not Resolved]
  - Visual impairment [Not Recovered/Not Resolved]
  - Nausea [Recovering/Resolving]
  - Drug ineffective [Not Recovered/Not Resolved]
